FAERS Safety Report 18508699 (Version 2)
Quarter: 2020Q4

REPORT INFORMATION
  Report Type: Report from Study
  Country: IT (occurrence: IT)
  Receive Date: 20201117
  Receipt Date: 20201130
  Transmission Date: 20210114
  Serious: Yes (Hospitalization)
  Sender: FDA-Public Use
  Company Number: IT-B.I. PHARMACEUTICALS,INC./RIDGEFIELD-2020-BI-060046

PATIENT
  Age: 60 Year
  Sex: Male
  Weight: 0 kg

DRUGS (7)
  1. STALEVO [LEVOCETIRIZINE DIHYDROCHLORIDE] [Concomitant]
     Active Substance: LEVOCETIRIZINE DIHYDROCHLORIDE
     Indication: PRODUCT USED FOR UNKNOWN INDICATION
  2. MADOPAR [Concomitant]
     Active Substance: BENSERAZIDE HYDROCHLORIDE\LEVODOPA
     Indication: PRODUCT USED FOR UNKNOWN INDICATION
  3. MOVICOL [Concomitant]
     Active Substance: POLYETHYLENE GLYCOL 3350\POTASSIUM CHLORIDE\SODIUM BICARBONATE\SODIUM CHLORIDE
     Indication: PRODUCT USED FOR UNKNOWN INDICATION
  4. XADAGO [Concomitant]
     Active Substance: SAFINAMIDE MESYLATE
     Indication: PRODUCT USED FOR UNKNOWN INDICATION
  5. CARDIOASPIRIN [Concomitant]
     Active Substance: ASPIRIN
     Indication: PRODUCT USED FOR UNKNOWN INDICATION
  6. MIRAPEXIN [Suspect]
     Active Substance: PRAMIPEXOLE
     Indication: PARKINSONISM
     Route: 048
     Dates: start: 20070101, end: 20200806
  7. PREGABALIN. [Concomitant]
     Active Substance: PREGABALIN

REACTIONS (2)
  - Gambling disorder [Recovering/Resolving]
  - Hyperphagia [Recovering/Resolving]

NARRATIVE: CASE EVENT DATE: 20200701
